FAERS Safety Report 6109254-7 (Version None)
Quarter: 2009Q1

REPORT INFORMATION
  Report Type: 
  Country: None (occurrence: None)
  Receive Date: 20090306
  Receipt Date: 20090306
  Transmission Date: 20090719
  Serious: Yes (Hospitalization)
  Sender: FDA-Public Use
  Company Number: None

PATIENT
  Age: 77 Year
  Sex: Male
  Weight: 76.2 kg

DRUGS (2)
  1. METHOCARBAMOL [Suspect]
     Indication: MUSCLE SPASMS
     Dosage: 750 MG QID PO
     Route: 048
     Dates: start: 20090121, end: 20090214
  2. OXYCODONE AND ACETAMINOPHEN [Suspect]
     Indication: PAIN
     Dosage: 5/325 MG OTHER PO
     Route: 048
     Dates: start: 20090213, end: 20090214

REACTIONS (4)
  - ANGIOEDEMA [None]
  - PRURITUS [None]
  - RESPIRATORY DEPRESSION [None]
  - URTICARIA [None]
